FAERS Safety Report 8912073 (Version 3)
Quarter: 2013Q1

REPORT INFORMATION
  Report Type: Spontaneous
  Country: US (occurrence: US)
  Receive Date: 20121116
  Receipt Date: 20130215
  Transmission Date: 20140127
  Serious: Yes (Other)
  Sender: FDA-Public Use
  Company Number: US-PFIZER INC-2012285158

PATIENT
  Age: 64 Year
  Sex: Male
  Weight: 99.32 kg

DRUGS (3)
  1. SUTENT [Suspect]
     Indication: METASTATIC RENAL CELL CARCINOMA
     Dosage: 50 MG, CYCLIC (THREE 42 DAY CYCLES)
     Dates: start: 20120927
  2. SUTENT [Suspect]
     Dosage: FOURTH 42 DAY CYCLIC
     Dates: start: 20130131
  3. PROBIOTICS [Concomitant]
     Dosage: UNK

REACTIONS (6)
  - Hypertension [Unknown]
  - Hair colour changes [Unknown]
  - Blood urine present [Unknown]
  - Rash [Unknown]
  - Dry skin [Unknown]
  - Terminal insomnia [Unknown]
